FAERS Safety Report 4458992-0 (Version None)
Quarter: 2004Q3

REPORT INFORMATION
  Report Type: 
  Country: None (occurrence: None)
  Receive Date: 20040923
  Receipt Date: 20040923
  Transmission Date: 20050211
  Serious: Yes (Other)
  Sender: FDA-Public Use
  Company Number: None

PATIENT
  Sex: Female
  Weight: 90.7194 kg

DRUGS (1)
  1. SYNTHROID  100MCG  ABBOTT LABORATORIES [Suspect]
     Indication: HYPOTHYROIDISM
     Dosage: 1 DAILY ORAL
     Route: 048
     Dates: start: 20040908, end: 20040910

REACTIONS (2)
  - RASH [None]
  - URTICARIA [None]
